FAERS Safety Report 7128429-1 (Version None)
Quarter: 2010Q4

REPORT INFORMATION
  Report Type: 
  Country: None (occurrence: None)
  Receive Date: 20101130
  Receipt Date: 20101128
  Transmission Date: 20110411
  Serious: Yes (Death)
  Sender: FDA-Public Use
  Company Number: JO-PFIZER INC-2010158635

PATIENT
  Age: 76 Year
  Sex: Female

DRUGS (1)
  1. TIGECYCLINE [Suspect]
     Indication: PERITONITIS
     Dosage: 100 MG, 1X/DAY
     Route: 042

REACTIONS (2)
  - PERITONITIS [None]
  - SEPTIC SHOCK [None]
